FAERS Safety Report 8966271 (Version 1)
Quarter: 2012Q4

REPORT INFORMATION
  Report Type: 
  Country: US (occurrence: US)
  Receive Date: 20121217
  Receipt Date: 20121217
  Transmission Date: 20130627
  Serious: Yes (Death)
  Sender: FDA-Public Use
  Company Number: US-VIROPHARMA INCORPORATED-20121204CINRY3708

PATIENT
  Age: 25 None
  Sex: Female
  Weight: 85.5 kg

DRUGS (12)
  1. CINRYZE (C1 ESTERASE INHIBITOR (HUMAN)) [Suspect]
     Indication: HEREDITARY ANGIOEDEMA
     Dates: start: 20120720
  2. AMBIEN [Suspect]
     Indication: ANXIETY
     Route: 048
  3. DILAUDID [Suspect]
     Indication: PAIN
     Route: 048
  4. EPIPEN [Concomitant]
     Indication: PRODUCT USED FOR UNKNOWN INDICATION
     Route: 065
  5. PRENATAL [Concomitant]
     Indication: SUPPLEMENTATION THERAPY
     Route: 048
  6. TUMS [Concomitant]
     Indication: PRODUCT USED FOR UNKNOWN INDICATION
     Route: 048
  7. PEPCID [Concomitant]
     Indication: GASTRITIS
     Route: 048
  8. FLONASE [Concomitant]
     Indication: PRODUCT USED FOR UNKNOWN INDICATION
     Route: 065
  9. TYLENOL [Concomitant]
     Indication: PRODUCT USED FOR UNKNOWN INDICATION
     Route: 065
  10. PHENERGAN [Concomitant]
     Indication: VOMITING
     Route: 048
  11. PROTONIX [Concomitant]
     Indication: GASTRITIS
     Route: 048
  12. IRON [Concomitant]
     Indication: PRODUCT USED FOR UNKNOWN INDICATION
     Route: 048

REACTIONS (3)
  - Acute respiratory failure [Fatal]
  - Exposure during pregnancy [Not Recovered/Not Resolved]
  - Bronchitis [Not Recovered/Not Resolved]
